FAERS Safety Report 8563995-0 (Version None)
Quarter: 2012Q3

REPORT INFORMATION
  Report Type: 
  Country: None (occurrence: None)
  Receive Date: 20120803
  Receipt Date: 20120731
  Transmission Date: 20120928
  Serious: Yes (Death, Hospitalization, Other)
  Sender: FDA-Public Use
  Company Number: PHHY2012CA052474

PATIENT
  Sex: Female

DRUGS (1)
  1. AFINITOR [Suspect]
     Indication: RENAL CELL CARCINOMA
     Dosage: 10 MG, QD
     Route: 048
     Dates: start: 20120403

REACTIONS (8)
  - DIABETIC COMA [None]
  - BRAIN OEDEMA [None]
  - LETHARGY [None]
  - HYPERSOMNIA [None]
  - MALAISE [None]
  - INFECTION [None]
  - BLOOD GLUCOSE DECREASED [None]
  - DYSPNOEA [None]
